FAERS Safety Report 14774039 (Version 1)
Quarter: 2018Q2

REPORT INFORMATION
  Report Type: Spontaneous
  Country: ES (occurrence: ES)
  Receive Date: 20180418
  Receipt Date: 20180418
  Transmission Date: 20180711
  Serious: Yes (Hospitalization)
  Sender: FDA-Public Use
  Company Number: ES-BRACCO-001380

PATIENT
  Age: 61 Year
  Sex: Male

DRUGS (5)
  1. PLETAL [Concomitant]
     Active Substance: CILOSTAZOL
     Indication: PRODUCT USED FOR UNKNOWN INDICATION
  2. IOPAMIRO [Suspect]
     Active Substance: IOPAMIDOL
     Indication: ARTERIOGRAM
     Dosage: 120 ML, TOTAL
     Route: 013
     Dates: start: 20160120, end: 20160120
  3. OLMESARTAN [Concomitant]
     Active Substance: OLMESARTAN
     Indication: PRODUCT USED FOR UNKNOWN INDICATION
  4. METFORMIN [Concomitant]
     Active Substance: METFORMIN HYDROCHLORIDE
     Indication: PRODUCT USED FOR UNKNOWN INDICATION
  5. ALIPZA [Concomitant]
     Active Substance: PITAVASTATIN
     Indication: PRODUCT USED FOR UNKNOWN INDICATION

REACTIONS (1)
  - Contrast encephalopathy [Recovered/Resolved]

NARRATIVE: CASE EVENT DATE: 20160120
